FAERS Safety Report 8163595-0 (Version None)
Quarter: 2012Q1

REPORT INFORMATION
  Report Type: 
  Country: None (occurrence: None)
  Receive Date: 20120224
  Receipt Date: 20120221
  Transmission Date: 20120608
  Serious: Yes (Life-Threatening, Other)
  Sender: FDA-Public Use
  Company Number: US-JNJFOC-20120107479

PATIENT
  Sex: Female
  Weight: 87.54 kg

DRUGS (5)
  1. LISINOPRIL [Concomitant]
  2. XARELTO [Suspect]
     Route: 048
     Dates: start: 20111230
  3. OXYCODONE HCL AND ACETAMINOPHEN [Concomitant]
  4. XARELTO [Suspect]
     Indication: HIP ARTHROPLASTY
     Route: 048
  5. CRESTOR [Concomitant]

REACTIONS (1)
  - DEEP VEIN THROMBOSIS [None]
